FAERS Safety Report 4603571-5 (Version None)
Quarter: 2005Q1

REPORT INFORMATION
  Report Type: 
  Country: None (occurrence: None)
  Receive Date: 20050310
  Receipt Date: 20050303
  Transmission Date: 20050727
  Serious: Yes (Life-Threatening)
  Sender: FDA-Public Use
  Company Number: US-KINGPHARMUSA00001-K200500298

PATIENT
  Sex: Male

DRUGS (9)
  1. ALTACE [Suspect]
     Indication: CARDIAC FAILURE CONGESTIVE
     Dosage: 5 MG, QD
     Route: 048
     Dates: end: 20050128
  2. ISOSORBIDE MONONITRATE [Concomitant]
     Dosage: 60 MG, UNK
     Route: 054
  3. PHENYTOIN [Concomitant]
     Dosage: 100 MG, UNK
  4. GLICLAZIDE [Concomitant]
     Dosage: 80 MG, UNK
  5. DIGOXIN [Concomitant]
     Dosage: 125 UG, UNK
     Dates: end: 20050130
  6. TAMSULOSIN [Concomitant]
     Dosage: 400 UG, UNK
  7. SENNA [Concomitant]
     Dosage: X2 , QD , EVENING
  8. FRUSEMIDE [Concomitant]
     Dosage: 40 MG, UNK
     Dates: end: 20050117
  9. METHOTREXATE [Concomitant]
     Dosage: 2.5 MG, UNK
     Dates: start: 20050112, end: 20050118

REACTIONS (4)
  - BLOOD CREATININE INCREASED [None]
  - CARDIAC ARREST [None]
  - HYPERKALAEMIA [None]
  - RENAL FAILURE ACUTE [None]
